FAERS Safety Report 19230655 (Version 1)
Quarter: 2021Q2

REPORT INFORMATION
  Report Type: Spontaneous
  Country: US (occurrence: US)
  Receive Date: 20210506
  Receipt Date: 20210506
  Transmission Date: 20210717
  Serious: Yes (Hospitalization)
  Sender: FDA-Public Use
  Company Number: None

PATIENT
  Sex: Female

DRUGS (3)
  1. PROTONIX [Concomitant]
     Active Substance: PANTOPRAZOLE SODIUM
  2. BOTOX [Suspect]
     Active Substance: ONABOTULINUMTOXINA
     Indication: HYPERHIDROSIS
     Route: 023
     Dates: start: 20180227
  3. ATENOLOL. [Concomitant]
     Active Substance: ATENOLOL

REACTIONS (3)
  - Nausea [None]
  - Anxiety [None]
  - Chest pain [None]
